FAERS Safety Report 6369124-6 (Version None)
Quarter: 2009Q3

REPORT INFORMATION
  Report Type: 
  Country: None (occurrence: None)
  Receive Date: 20090917
  Receipt Date: 20090917
  Transmission Date: 20100115
  Serious: Yes (Hospitalization)
  Sender: FDA-Public Use
  Company Number: None

PATIENT
  Age: 52 Year
  Sex: Female
  Weight: 54 kg

DRUGS (2)
  1. CISPLATIN [Suspect]
     Indication: CARCINOID TUMOUR
     Dosage: 155MG ONCE IV
     Route: 042
     Dates: start: 20090911, end: 20090911
  2. ETOPOSIDE [Suspect]
     Indication: CARCINOID TUMOUR
     Dosage: 155MG DAILY X 3 DOSES IV
     Route: 042
     Dates: start: 20090911, end: 20090913

REACTIONS (5)
  - ABDOMINAL PAIN UPPER [None]
  - BLOOD CREATINE INCREASED [None]
  - BLOOD UREA INCREASED [None]
  - NAUSEA [None]
  - VOMITING [None]
